FAERS Safety Report 4620842-7 (Version None)
Quarter: 2005Q1

REPORT INFORMATION
  Report Type: 
  Country: None (occurrence: None)
  Receive Date: 20050325
  Receipt Date: 20050317
  Transmission Date: 20050727
  Serious: Yes (Other)
  Sender: FDA-Public Use
  Company Number: 163-20785-05030483

PATIENT
  Age: 17 Year
  Sex: Female

DRUGS (9)
  1. THALOMID [Suspect]
     Indication: MEDULLOBLASTOMA
     Dosage: 300 MG, DAILY, ORAL
     Route: 048
     Dates: start: 20040301, end: 20041202
  2. THALOMID [Suspect]
     Indication: NAUSEA
     Dosage: 300 MG, DAILY, ORAL
     Route: 048
     Dates: start: 20040301, end: 20041202
  3. PAXIL [Concomitant]
  4. FOLIC ACID [Concomitant]
  5. CHORIONIC GONADOTROPIN 10 (CHORIONIC GONADOTROPHIN) [Concomitant]
  6. VITAMIN B (VITAMIN B) [Concomitant]
  7. VITAMIN B12 [Concomitant]
  8. CORTISOL [Concomitant]
  9. LITHIUM CARBONATE [Concomitant]

REACTIONS (4)
  - ADRENAL DISORDER [None]
  - DRUG INEFFECTIVE [None]
  - MENOPAUSE [None]
  - NEUROPATHY [None]
